APPROVED DRUG PRODUCT: MEPERIDINE HYDROCHLORIDE
Active Ingredient: MEPERIDINE HYDROCHLORIDE
Strength: 75MG/ML
Dosage Form/Route: INJECTABLE;INJECTION
Application: A080455 | Product #009 | TE Code: AP
Applicant: WEST-WARD PHARMACEUTICALS INTERNATIONAL LTD
Approved: Approved Prior to Jan 1, 1982 | RLD: No | RS: No | Type: RX